FAERS Safety Report 6257180-5 (Version None)
Quarter: 2009Q3

REPORT INFORMATION
  Report Type: 
  Country: None (occurrence: None)
  Receive Date: 20090706
  Receipt Date: 20090629
  Transmission Date: 20100115
  Serious: Yes (Other)
  Sender: FDA-Public Use
  Company Number: US-BAYER-200911500NA

PATIENT
  Sex: Male

DRUGS (5)
  1. NEXAVAR [Suspect]
     Indication: HEPATIC NEOPLASM MALIGNANT
     Dosage: TOTAL DAILY DOSE: 800 MG  UNIT DOSE: 200 MG
     Route: 048
     Dates: start: 20081226, end: 20090325
  2. NEXAVAR [Suspect]
     Dosage: DOSE TITRATED DOWN
     Route: 048
     Dates: end: 20090325
  3. ATENOLOL [Concomitant]
  4. VIBRAMYCIN [Concomitant]
     Dates: start: 20090114
  5. LACTULOSE [Concomitant]
     Dates: start: 20090223

REACTIONS (1)
  - PLATELET COUNT DECREASED [None]
